FAERS Safety Report 8152211-X (Version None)
Quarter: 2012Q1

REPORT INFORMATION
  Report Type: 
  Country: None (occurrence: None)
  Receive Date: 20120215
  Receipt Date: 20120215
  Transmission Date: 20120608
  Serious: Yes (Other)
  Sender: FDA-Public Use
  Company Number: None

PATIENT
  Age: 5 Year
  Sex: Female
  Weight: 18.3 kg

DRUGS (1)
  1. LUPRON DEPOT [Suspect]
     Indication: PRECOCIOUS PUBERTY
     Dosage: 11.25MG Q 3 MONTHS IM
     Route: 030
     Dates: start: 20120113

REACTIONS (2)
  - INJECTION SITE SWELLING [None]
  - INJECTION SITE PAIN [None]
